FAERS Safety Report 24529760 (Version 1)
Quarter: 2024Q4

REPORT INFORMATION
  Report Type: Spontaneous
  Country: CN (occurrence: CN)
  Receive Date: 20241021
  Receipt Date: 20241021
  Transmission Date: 20250115
  Serious: Yes (Hospitalization, Other)
  Sender: EPIC PHARM
  Company Number: CN-EPICPHARMA-CN-2024EPCLIT01262

PATIENT
  Age: 39 Year
  Sex: Male

DRUGS (1)
  1. AMIODARONE HYDROCHLORIDE [Suspect]
     Active Substance: AMIODARONE HYDROCHLORIDE
     Indication: Atrial fibrillation
     Route: 048

REACTIONS (4)
  - Cardiac failure [Recovered/Resolved]
  - Fabry^s disease [Recovered/Resolved]
  - Symptom masked [Recovered/Resolved]
  - Product use in unapproved indication [Unknown]
